FAERS Safety Report 15464826 (Version 1)
Quarter: 2018Q4

REPORT INFORMATION
  Report Type: Spontaneous
  Country: US (occurrence: US)
  Receive Date: 20181004
  Receipt Date: 20181004
  Transmission Date: 20190204
  Serious: Yes (Other)
  Sender: FDA-Public Use
  Company Number: US-JNJFOC-20180933655

PATIENT
  Sex: Male

DRUGS (1)
  1. ZYTIGA [Suspect]
     Active Substance: ABIRATERONE ACETATE
     Indication: PRODUCT USED FOR UNKNOWN INDICATION
     Dosage: 250 MG TAKE 4 TABLETS ONCE DAILY AS DIRECTED
     Route: 048
     Dates: start: 201807, end: 201807

REACTIONS (1)
  - Transient ischaemic attack [Not Recovered/Not Resolved]
